FAERS Safety Report 9914544 (Version 1)
Quarter: 2014Q1

REPORT INFORMATION
  Report Type: Spontaneous
  Country: US (occurrence: US)
  Receive Date: 20140220
  Receipt Date: 20140220
  Transmission Date: 20141002
  Serious: No
  Sender: FDA-Public Use
  Company Number: US-BAYER-2014-020443

PATIENT
  Age: 54 Year
  Sex: Male
  Weight: 68 kg

DRUGS (5)
  1. ALEVE CAPLET [Suspect]
     Indication: ANALGESIC THERAPY
     Dosage: UNK
     Route: 048
     Dates: start: 1999
  2. ALEVE CAPLET [Suspect]
     Indication: ANALGESIC THERAPY
     Route: 048
  3. BAYER GENUINE ASPIRIN ORIGINAL STRENGTH [Suspect]
     Route: 048
  4. NORTRIPTYLINE [Concomitant]
  5. LYRICA [Concomitant]

REACTIONS (4)
  - Incorrect drug administration duration [None]
  - Incorrect drug administration duration [None]
  - Incorrect dose administered [None]
  - Incorrect dose administered [None]
